FAERS Safety Report 15084465 (Version 1)
Quarter: 2018Q2

REPORT INFORMATION
  Report Type: Spontaneous
  Country: US (occurrence: US)
  Receive Date: 20180608
  Receipt Date: 20180608
  Transmission Date: 20180711
  Serious: Yes (Hospitalization)
  Sender: FDA-Public Use
  Company Number: None

PATIENT
  Age: 41 Year
  Sex: Female

DRUGS (9)
  1. XALKORI [Suspect]
     Active Substance: CRIZOTINIB
     Indication: LUNG NEOPLASM MALIGNANT
     Route: 048
     Dates: start: 20171018
  2. ELIQUIS [Concomitant]
     Active Substance: APIXABAN
     Dates: start: 20171224
  3. DEXAMETHASON [Concomitant]
     Active Substance: DEXAMETHASONE
     Dates: start: 20180608
  4. PAROXETINE. [Concomitant]
     Active Substance: PAROXETINE
     Dates: start: 20170615
  5. DONEPEZIL. [Concomitant]
     Active Substance: DONEPEZIL
     Dates: start: 20171226
  6. ONDANSETRON [Concomitant]
     Active Substance: ONDANSETRON
     Dates: start: 20180129
  7. CIPROFLOXACN [Concomitant]
     Active Substance: CIPROFLOXACIN
     Dates: start: 20180529
  8. FLUCONAZOLE. [Concomitant]
     Active Substance: FLUCONAZOLE
     Dates: start: 20180529
  9. NYSTATIN SUS [Concomitant]
     Dates: start: 20180529

REACTIONS (1)
  - Hospitalisation [None]
